FAERS Safety Report 6139295-5 (Version None)
Quarter: 2009Q2

REPORT INFORMATION
  Report Type: 
  Country: None (occurrence: None)
  Receive Date: 20090401
  Receipt Date: 20090330
  Transmission Date: 20091009
  Serious: Yes (Death, Other)
  Sender: FDA-Public Use
  Company Number: ES-BRISTOL-MYERS SQUIBB COMPANY-14565931

PATIENT
  Age: 82 Year
  Sex: Male

DRUGS (1)
  1. SINEMET [Suspect]

REACTIONS (2)
  - MEDICATION ERROR [None]
  - NEUROLEPTIC MALIGNANT SYNDROME [None]
